FAERS Safety Report 7727417-1 (Version None)
Quarter: 2011Q3

REPORT INFORMATION
  Report Type: 
  Country: None (occurrence: None)
  Receive Date: 20110902
  Receipt Date: 20110830
  Transmission Date: 20111222
  Serious: Yes (Death)
  Sender: FDA-Public Use
  Company Number: US-PFIZER INC-2011160804

PATIENT
  Sex: Male

DRUGS (11)
  1. LANTUS [Concomitant]
     Dosage: 30 UNITS IN AM, 25 UNITS IN PM
  2. PRILOSEC [Concomitant]
     Dosage: 40 MG, 1X/DAY
  3. FORADIL [Concomitant]
     Dosage: UNK
  4. REVATIO [Suspect]
     Indication: IDIOPATHIC PULMONARY FIBROSIS
     Dosage: 20 MG, 3X/DAY
     Route: 048
     Dates: start: 20110620, end: 20110626
  5. LIPITOR [Concomitant]
     Dosage: 10 MG, UNK
  6. BACTRIM DS [Concomitant]
     Dosage: UNK
  7. ENALAPRIL [Concomitant]
     Dosage: 2.5 MG (1/2 TAB)
  8. JANUMET [Concomitant]
     Dosage: 50/1000 BID
  9. ZOLOFT [Concomitant]
     Dosage: 50 MG, 1X/DAY
  10. AMBIEN [Concomitant]
     Dosage: 5 MG, 1X/DAY PRN
  11. OXYGEN [Concomitant]
     Dosage: 8 L/MIN

REACTIONS (2)
  - IDIOPATHIC PULMONARY FIBROSIS [None]
  - RESPIRATORY FAILURE [None]
